FAERS Safety Report 17912815 (Version 1)
Quarter: 2020Q2

REPORT INFORMATION
  Report Type: Spontaneous
  Country: GB (occurrence: GB)
  Receive Date: 20200618
  Receipt Date: 20200618
  Transmission Date: 20200714
  Serious: Yes (Other)
  Sender: FDA-Public Use
  Company Number: GB-GLAXOSMITHKLINE-GB2020EME099933

PATIENT
  Sex: Male

DRUGS (2)
  1. NUCALA [Suspect]
     Active Substance: MEPOLIZUMAB
     Indication: ASTHMA
     Dosage: UNK
     Route: 058
  2. PREDNISONE. [Suspect]
     Active Substance: PREDNISONE
     Indication: PRODUCT USED FOR UNKNOWN INDICATION
     Dosage: 40 MG

REACTIONS (6)
  - Dyspnoea [Not Recovered/Not Resolved]
  - Radicular pain [Not Recovered/Not Resolved]
  - Pain [Not Recovered/Not Resolved]
  - Sepsis [Not Recovered/Not Resolved]
  - Paraesthesia [Not Recovered/Not Resolved]
  - Sleep disorder [Not Recovered/Not Resolved]
